FAERS Safety Report 8923730 (Version 2)
Quarter: 2012Q4

REPORT INFORMATION
  Report Type: 
  Country: FR (occurrence: FR)
  Receive Date: 20121126
  Receipt Date: 20121213
  Transmission Date: 20130627
  Serious: Yes (Other)
  Sender: FDA-Public Use
  Company Number: FR-BAUSCH-BL-2012-001790

PATIENT
  Age: 70 Year
  Sex: Male

DRUGS (3)
  1. YELLOX [Suspect]
     Indication: POSTOPERATIVE CARE
     Route: 047
     Dates: start: 20121023, end: 2012
  2. TOBRAMYCIN [Suspect]
  3. DEXAMETHASONE [Suspect]

REACTIONS (2)
  - Macular oedema [Recovered/Resolved]
  - Incorrect dose administered [Recovered/Resolved]
